FAERS Safety Report 9408058 (Version 1)
Quarter: 2013Q3

REPORT INFORMATION
  Report Type: Spontaneous
  Country: DE (occurrence: DE)
  Receive Date: 20130718
  Receipt Date: 20130718
  Transmission Date: 20140515
  Serious: Yes (Congenital Anomaly, Other)
  Sender: FDA-Public Use
  Company Number: DE-ABBOTT-13X-062-1120488-00

PATIENT
  Sex: 0

DRUGS (1)
  1. VALPROIC ACID [Suspect]
     Indication: MATERNAL EXPOSURE TIMING UNSPECIFIED
     Route: 064

REACTIONS (14)
  - Withdrawal syndrome [Unknown]
  - Ventricular septal defect [Unknown]
  - Congenital inguinal hernia [Unknown]
  - Deafness congenital [Not Recovered/Not Resolved]
  - Agitation neonatal [Recovered/Resolved]
  - Crying [Unknown]
  - Tremor [Unknown]
  - Pectus excavatum [Not Recovered/Not Resolved]
  - Foot deformity [Not Recovered/Not Resolved]
  - Motor developmental delay [Not Recovered/Not Resolved]
  - Hypotonia neonatal [Not Recovered/Not Resolved]
  - Movement disorder [Unknown]
  - Deafness unilateral [Unknown]
  - Foetal exposure during pregnancy [Unknown]
